FAERS Safety Report 26169187 (Version 1)
Quarter: 2025Q4

REPORT INFORMATION
  Report Type: Spontaneous
  Country: US (occurrence: US)
  Receive Date: 20251217
  Receipt Date: 20251217
  Transmission Date: 20260118
  Serious: Yes (Hospitalization)
  Sender: MAYNE
  Company Number: US-DUCHESNAY INC-2025MYN000743

PATIENT

DRUGS (1)
  1. ANNOVERA [Suspect]
     Active Substance: ETHINYL ESTRADIOL\SEGESTERONE ACETATE
     Indication: Product used for unknown indication
     Route: 065

REACTIONS (5)
  - Vaginal infection [Unknown]
  - Device defective [Unknown]
  - Expired device used [Unknown]
  - Product packaging issue [Unknown]
  - Suspected product contamination [Unknown]
